FAERS Safety Report 9207655 (Version 2)
Quarter: 2014Q1

REPORT INFORMATION
  Report Type: Spontaneous
  Country: US (occurrence: US)
  Receive Date: 20130403
  Receipt Date: 20140110
  Transmission Date: 20141002
  Serious: Yes (Other)
  Sender: FDA-Public Use
  Company Number: US-BAYER-2013-040186

PATIENT
  Age: 39 Year
  Sex: Female

DRUGS (9)
  1. YASMIN [Suspect]
     Dosage: UNK
     Dates: start: 2006, end: 201105
  2. YAZ [Suspect]
     Dosage: UNK
     Dates: start: 2006, end: 201105
  3. OCELLA [Suspect]
     Dosage: UNK
     Dates: start: 2006, end: 201105
  4. BUPROPION [Concomitant]
     Dosage: 100 MG, UNK
  5. HYDROCODONE W/APAP [Concomitant]
     Dosage: 7.5/500 MG
  6. SUMATRIPTAN [Concomitant]
     Dosage: 100 MG, UNK
  7. OMEPRAZOLE [Concomitant]
     Dosage: 20 MG, UNK
  8. SERTRALINE [Concomitant]
     Dosage: 50 MG, UNK
  9. HYDROXYZINE [Concomitant]
     Dosage: 25 MG, UNK

REACTIONS (7)
  - Cholelithiasis [None]
  - Cholecystitis [None]
  - Injury [None]
  - Emotional distress [None]
  - Pain [None]
  - Anxiety [None]
  - Psychological trauma [None]
